FAERS Safety Report 10593376 (Version 2)
Quarter: 2014Q4

REPORT INFORMATION
  Report Type: Spontaneous
  Country: JP (occurrence: JP)
  Receive Date: 20141119
  Receipt Date: 20141216
  Transmission Date: 20150529
  Serious: Yes (Hospitalization, Other)
  Sender: FDA-Public Use
  Company Number: JP-GLAXOSMITHKLINE-JP2014JPN008959

PATIENT

DRUGS (1)
  1. VOTRIENT [Suspect]
     Active Substance: PAZOPANIB HYDROCHLORIDE
     Indication: SOFT TISSUE SARCOMA
     Dosage: 800 MG, QD
     Route: 048
     Dates: start: 201310

REACTIONS (13)
  - Abdominal pain [Unknown]
  - Intestinal dilatation [Unknown]
  - Asthenia [Unknown]
  - Intra-abdominal pressure increased [Unknown]
  - Bacterial translocation [Unknown]
  - Pain [Unknown]
  - Abdominal distension [Unknown]
  - Abdominal tenderness [Unknown]
  - Vulvovaginal pain [Unknown]
  - Diaphragmatic abnormal relaxation [Unknown]
  - Bacterial infection [Unknown]
  - Pyrexia [Unknown]
  - Ileus paralytic [Recovered/Resolved]

NARRATIVE: CASE EVENT DATE: 201409
